FAERS Safety Report 18790160 (Version 7)
Quarter: 2021Q4

REPORT INFORMATION
  Report Type: Spontaneous
  Country: TR (occurrence: TR)
  Receive Date: 20210126
  Receipt Date: 20211007
  Transmission Date: 20220303
  Serious: No
  Sender: FDA-Public Use
  Company Number: TR-PFIZER INC-2021050081

PATIENT

DRUGS (1)
  1. ENBREL [Suspect]
     Active Substance: ETANERCEPT
     Dosage: UNK

REACTIONS (2)
  - Device issue [Unknown]
  - Device difficult to use [Unknown]
